FAERS Safety Report 13178450 (Version 1)
Quarter: 2017Q1

REPORT INFORMATION
  Report Type: Spontaneous
  Country: US (occurrence: US)
  Receive Date: 20170202
  Receipt Date: 20170202
  Transmission Date: 20170428
  Serious: No
  Sender: FDA-Public Use
  Company Number: US-AMGEN-USASP2017015373

PATIENT
  Age: 52 Year
  Sex: Male

DRUGS (6)
  1. CLOBETASOL [Concomitant]
     Active Substance: CLOBETASOL
  2. ENBREL [Suspect]
     Active Substance: ETANERCEPT
     Indication: PSORIASIS
  3. ENBREL [Suspect]
     Active Substance: ETANERCEPT
     Indication: PSORIATIC ARTHROPATHY
     Dosage: 50 MG, QWK
     Route: 058
     Dates: start: 2015
  4. NAPROSYN [Concomitant]
     Active Substance: NAPROXEN
  5. LISINOPRIL. [Concomitant]
     Active Substance: LISINOPRIL
  6. DOVONEX [Concomitant]
     Active Substance: CALCIPOTRIENE

REACTIONS (3)
  - Psoriasis [Not Recovered/Not Resolved]
  - Inappropriate schedule of drug administration [Unknown]
  - Drug dose omission [Unknown]

NARRATIVE: CASE EVENT DATE: 201612
